FAERS Safety Report 16031912 (Version 2)
Quarter: 2019Q1

REPORT INFORMATION
  Report Type: Spontaneous
  Country: TR (occurrence: TR)
  Receive Date: 20190304
  Receipt Date: 20190304
  Transmission Date: 20190418
  Serious: Yes (Death, Hospitalization)
  Sender: FDA-Public Use
  Company Number: PHHY2019TR045422

PATIENT
  Sex: Male
  Weight: 3.53 kg

DRUGS (5)
  1. VITAMIN D [Concomitant]
     Active Substance: CHOLECALCIFEROL
     Indication: PRODUCT USED FOR UNKNOWN INDICATION
     Route: 065
  2. OCTREOTIDE. [Suspect]
     Active Substance: OCTREOTIDE
     Indication: ASCITES
     Dosage: 5 MCG/KG/HOUR
     Route: 042
  3. PHYTOMENADIONE [Concomitant]
     Active Substance: PHYTONADIONE
     Indication: PRODUCT USED FOR UNKNOWN INDICATION
     Route: 065
  4. OCTREOTIDE. [Suspect]
     Active Substance: OCTREOTIDE
     Dosage: 10 MCG/KG/HOUR
     Route: 042
  5. VITAMIN A [Concomitant]
     Active Substance: VITAMIN A
     Indication: PRODUCT USED FOR UNKNOWN INDICATION
     Dosage: UNK
     Route: 065

REACTIONS (9)
  - Disseminated intravascular coagulation [Fatal]
  - Therapy non-responder [Unknown]
  - Product use in unapproved indication [Unknown]
  - Hypoalbuminaemia [Fatal]
  - Lymphangiectasia [Fatal]
  - Sepsis [Fatal]
  - Product use issue [Unknown]
  - Immunodeficiency [Fatal]
  - Lymphopenia [Fatal]
